FAERS Safety Report 7278231-5 (Version None)
Quarter: 2011Q1

REPORT INFORMATION
  Report Type: 
  Country: None (occurrence: None)
  Receive Date: 20110114
  Receipt Date: 20110114
  Transmission Date: 20110831
  Serious: No
  Sender: FDA-Public Use
  Company Number: None

PATIENT
  Age: 64 Year
  Sex: Male
  Weight: 90.7194 kg

DRUGS (1)
  1. ALCOHOL PREP PAD 1 PAD TRIAD DISPOSABLES [Suspect]
     Indication: THERAPEUTIC SKIN CARE TOPICAL
     Dosage: 1 PAD 3 TIMES TOP
     Route: 061
     Dates: start: 20110103, end: 20110109

REACTIONS (3)
  - LACRIMATION INCREASED [None]
  - NASAL DISCOMFORT [None]
  - RHINORRHOEA [None]
